FAERS Safety Report 15323761 (Version 2)
Quarter: 2018Q3

REPORT INFORMATION
  Report Type: Spontaneous
  Country: US (occurrence: US)
  Receive Date: 20180828
  Receipt Date: 20180910
  Transmission Date: 20181010
  Serious: Yes (Other)
  Sender: FDA-Public Use
  Company Number: US-AMGEN-USASP2018115486

PATIENT
  Age: 52 Year
  Sex: Female
  Weight: 65.3 kg

DRUGS (1)
  1. ENBREL [Suspect]
     Active Substance: ETANERCEPT
     Indication: ARTHRITIS
     Dosage: 25 MG, 2 TIMES/WK
     Route: 065
     Dates: start: 201803

REACTIONS (4)
  - Major depression [Unknown]
  - Myalgia [Unknown]
  - Product storage error [Unknown]
  - Headache [Unknown]

NARRATIVE: CASE EVENT DATE: 2018
